FAERS Safety Report 13996605 (Version 2)
Quarter: 2018Q1

REPORT INFORMATION
  Report Type: Spontaneous
  Country: JP (occurrence: JP)
  Receive Date: 20170921
  Receipt Date: 20180122
  Transmission Date: 20180508
  Serious: Yes (Death, Other)
  Sender: FDA-Public Use
  Company Number: JP-REGENERON PHARMACEUTICALS, INC.-2017-22500

PATIENT

DRUGS (4)
  1. EYLEA [Suspect]
     Active Substance: AFLIBERCEPT
     Dosage: 0.05 ML, ONCE, RIGHT EYE
     Route: 031
     Dates: start: 20170717
  2. EYLEA [Suspect]
     Active Substance: AFLIBERCEPT
     Indication: AGE-RELATED MACULAR DEGENERATION
     Dosage: 0.05 ML, ONCE, RIGHT EYE
     Route: 031
     Dates: start: 20170328, end: 20170328
  3. EYLEA [Suspect]
     Active Substance: AFLIBERCEPT
     Dosage: 0.05 ML, ONCE, RIGHT EYE
     Route: 031
     Dates: start: 20170529, end: 20170529
  4. EYLEA [Suspect]
     Active Substance: AFLIBERCEPT
     Dosage: 0.05 ML, ONCE, RIGHT EYE
     Route: 031
     Dates: start: 20170426, end: 20170426

REACTIONS (1)
  - Death [Fatal]
